FAERS Safety Report 7120229-1 (Version None)
Quarter: 2010Q4

REPORT INFORMATION
  Report Type: 
  Country: None (occurrence: None)
  Receive Date: 20101123
  Receipt Date: 20101117
  Transmission Date: 20110411
  Serious: Yes (Hospitalization)
  Sender: FDA-Public Use
  Company Number: FR-GILEAD-2010-0033680

PATIENT
  Sex: Female
  Weight: 3.53 kg

DRUGS (7)
  1. TRUVADA [Suspect]
     Indication: HIV INFECTION
     Route: 064
     Dates: start: 20060323
  2. KALETRA [Concomitant]
     Indication: HIV INFECTION
     Route: 064
     Dates: start: 20060323
  3. SUSTIVA [Concomitant]
     Route: 064
     Dates: start: 20050301, end: 20060323
  4. AZT [Concomitant]
     Route: 064
  5. EMTRIVA [Concomitant]
     Indication: HIV INFECTION
     Route: 064
     Dates: start: 20050301, end: 20060323
  6. VIREAD [Concomitant]
     Indication: HIV INFECTION
     Route: 064
     Dates: start: 20050301, end: 20060323
  7. TARDYFERON B9 [Concomitant]
     Route: 064
     Dates: start: 20060323

REACTIONS (3)
  - BLOOD LACTIC ACID INCREASED [None]
  - GASTROOESOPHAGEAL REFLUX DISEASE [None]
  - MALAISE [None]
